FAERS Safety Report 4567657-6 (Version None)
Quarter: 2005Q1

REPORT INFORMATION
  Report Type: 
  Country: None (occurrence: None)
  Receive Date: 20050110
  Receipt Date: 20050110
  Transmission Date: 20050727
  Serious: No
  Sender: FDA-Public Use
  Company Number: None

PATIENT
  Sex: Male
  Weight: 55.7924 kg

DRUGS (1)
  1. DILANTIN [Suspect]

REACTIONS (3)
  - CONDITION AGGRAVATED [None]
  - CONVULSION [None]
  - PHARMACEUTICAL PRODUCT COMPLAINT [None]
